FAERS Safety Report 9013510 (Version 1)
Quarter: 2013Q1

REPORT INFORMATION
  Report Type: Spontaneous
  Country: US (occurrence: US)
  Receive Date: 20130115
  Receipt Date: 20130115
  Transmission Date: 20140127
  Serious: Yes (Hospitalization)
  Sender: FDA-Public Use
  Company Number: US-BAYER-2013-004446

PATIENT
  Age: 22 Year
  Sex: Female
  Weight: 64.4 kg

DRUGS (2)
  1. YAZ [Suspect]
  2. ADVIL [Concomitant]
     Dosage: 400 MG, UNK

REACTIONS (1)
  - Jugular vein thrombosis [None]
